FAERS Safety Report 18817857 (Version 1)
Quarter: 2021Q1

REPORT INFORMATION
  Report Type: Spontaneous
  Country: NL (occurrence: FR)
  Receive Date: 20210201
  Receipt Date: 20210201
  Transmission Date: 20210419
  Serious: Yes (Death)
  Sender: FDA-Public Use
  Company Number: FR-FRESENIUS KABI-FK202100920

PATIENT
  Sex: Female

DRUGS (2)
  1. PROPOFOL (MANUFACTURER UNKNOWN) [Suspect]
     Active Substance: PROPOFOL
     Indication: ENDOTRACHEAL INTUBATION
     Dosage: UNK
     Route: 042
     Dates: start: 20201002, end: 20201002
  2. SUXAMETHONIUM IODIDE [Suspect]
     Active Substance: SUCCINYLCHOLINE IODIDE
     Indication: ENDOTRACHEAL INTUBATION
     Dosage: UNK
     Route: 042
     Dates: start: 20201002, end: 20201002

REACTIONS (1)
  - Anaphylactic shock [Fatal]

NARRATIVE: CASE EVENT DATE: 20201002
